FAERS Safety Report 4692654-X (Version None)
Quarter: 2005Q2

REPORT INFORMATION
  Report Type: 
  Country: None (occurrence: None)
  Receive Date: 20050617
  Receipt Date: 20050311
  Transmission Date: 20051028
  Serious: Yes (Hospitalization, Other)
  Sender: FDA-Public Use
  Company Number: US-MERCK-0503USA02665

PATIENT
  Age: 64 Year
  Sex: Male
  Weight: 82 kg

DRUGS (16)
  1. VIOXX [Suspect]
     Indication: ARTHRITIS
     Route: 048
     Dates: start: 19990101, end: 20030401
  2. AVANDIA [Concomitant]
     Route: 065
  3. GLUCOPHAGE [Concomitant]
     Route: 065
  4. GLUCOTROL [Concomitant]
     Route: 065
  5. CRESTOR [Concomitant]
     Route: 065
  6. NEURONTIN [Concomitant]
     Route: 065
  7. AMBIEN [Concomitant]
     Route: 065
  8. EFFEXOR [Concomitant]
     Route: 065
     Dates: start: 20011101, end: 20011101
  9. ZYPREXA [Concomitant]
     Route: 065
  10. DILTIAZEM HYDROCHLORIDE [Concomitant]
     Route: 065
  11. WELLBUTRIN [Concomitant]
     Route: 065
  12. CELEXA [Concomitant]
     Route: 065
  13. LIPITOR [Concomitant]
     Route: 065
  14. AVAPRO [Concomitant]
     Route: 065
  15. PLAVIX [Concomitant]
     Route: 065
  16. PRAVACHOL [Concomitant]
     Route: 065

REACTIONS (23)
  - AMNESIA [None]
  - ANAEMIA POSTOPERATIVE [None]
  - CELLULITIS [None]
  - CEREBRAL ATROPHY [None]
  - CEREBRAL INFARCTION [None]
  - DEMENTIA [None]
  - DEPRESSION [None]
  - ESSENTIAL HYPERTENSION [None]
  - FALL [None]
  - GASTROINTESTINAL HAEMORRHAGE [None]
  - HEMIPARESIS [None]
  - HIP FRACTURE [None]
  - ILEUS PARALYTIC [None]
  - INSOMNIA [None]
  - INTERMITTENT CLAUDICATION [None]
  - ISCHAEMIC CEREBRAL INFARCTION [None]
  - LACUNAR INFARCTION [None]
  - MENTAL STATUS CHANGES [None]
  - OESOPHAGITIS ULCERATIVE [None]
  - PERIPHERAL VASCULAR DISORDER [None]
  - SINUSITIS [None]
  - TENSION HEADACHE [None]
  - TRANSIENT ISCHAEMIC ATTACK [None]
